FAERS Safety Report 6440470-0 (Version None)
Quarter: 2009Q4

REPORT INFORMATION
  Report Type: 
  Country: None (occurrence: None)
  Receive Date: 20091112
  Receipt Date: 20091112
  Transmission Date: 20100525
  Serious: Yes (Hospitalization)
  Sender: FDA-Public Use
  Company Number: None

PATIENT
  Age: 74 Year
  Sex: Female
  Weight: 68.2 kg

DRUGS (1)
  1. DAPSONE [Suspect]
     Dosage: 100 MG TWICE DAILY PO  ONE MONTH PRIOR TO ADMISS
     Route: 048

REACTIONS (2)
  - METHAEMOGLOBINAEMIA [None]
  - OXYGEN SATURATION DECREASED [None]
